FAERS Safety Report 13094001 (Version 1)
Quarter: 2017Q1

REPORT INFORMATION
  Report Type: Spontaneous
  Country: US (occurrence: US)
  Receive Date: 20170106
  Receipt Date: 20170106
  Transmission Date: 20170428
  Serious: No
  Sender: FDA-Public Use
  Company Number: US-AMGEN-USASP2017001000

PATIENT
  Sex: Male

DRUGS (3)
  1. OMNITROPE [Concomitant]
     Active Substance: SOMATROPIN
     Dosage: 0.5 MG, ON SATURDAY AND SUNDAY
  2. ENBREL [Suspect]
     Active Substance: ETANERCEPT
     Indication: JUVENILE IDIOPATHIC ARTHRITIS
     Dosage: 12.5 MG, QWK
     Route: 065
     Dates: start: 201501
  3. OMNITROPE [Concomitant]
     Active Substance: SOMATROPIN
     Indication: ENDOCRINE DISORDER
     Dosage: 0.5 MG, ON MONDAY

REACTIONS (3)
  - Injection site pruritus [Unknown]
  - Injection site warmth [Unknown]
  - Injection site erythema [Unknown]
